FAERS Safety Report 8584240-6 (Version None)
Quarter: 2012Q3

REPORT INFORMATION
  Report Type: 
  Country: None (occurrence: None)
  Receive Date: 20120810
  Receipt Date: 20120730
  Transmission Date: 20120928
  Serious: Yes (Other)
  Sender: FDA-Public Use
  Company Number: BR-BRISTOL-MYERS SQUIBB COMPANY-16838955

PATIENT
  Age: 86 Year
  Sex: Female

DRUGS (4)
  1. ATENOLOL [Concomitant]
  2. ASPIRIN [Concomitant]
  3. GLUCOVANCE [Suspect]
     Indication: DIABETES MELLITUS
     Dosage: 1DF= 500/2.5MG-2 PILLS 500/5 MG
     Dates: start: 20070101
  4. VICOG [Concomitant]

REACTIONS (3)
  - CEREBROVASCULAR ACCIDENT [None]
  - INCORRECT DOSE ADMINISTERED [None]
  - POLLAKIURIA [None]
